FAERS Safety Report 9385038 (Version 2)
Quarter: 2013Q4

REPORT INFORMATION
  Report Type: Spontaneous
  Country: US (occurrence: US)
  Receive Date: 20130705
  Receipt Date: 20131007
  Transmission Date: 20140711
  Serious: No
  Sender: FDA-Public Use
  Company Number: US-GLAXOSMITHKLINE-A1025855A

PATIENT
  Age: 40 Year
  Sex: 0
  Weight: 143 kg

DRUGS (3)
  1. BENLYSTA [Suspect]
     Dosage: 10MGK SEE DOSAGE TEXT
  2. PREDNISONE [Concomitant]
  3. PLAQUENIL [Concomitant]

REACTIONS (1)
  - Therapeutic response decreased [Unknown]
